FAERS Safety Report 8273988-9 (Version None)
Quarter: 2012Q2

REPORT INFORMATION
  Report Type: 
  Country: None (occurrence: None)
  Receive Date: 20120406
  Receipt Date: 20120406
  Transmission Date: 20120825
  Serious: Yes (Other)
  Sender: FDA-Public Use
  Company Number: None

PATIENT
  Age: 58 Year
  Sex: Female
  Weight: 63.5036 kg

DRUGS (1)
  1. LYRICA [Suspect]
     Indication: FIBROMYALGIA
     Dosage: 75 MG 2X DAY ORAL
     Route: 048
     Dates: start: 20080301, end: 20110201

REACTIONS (3)
  - GASTROINTESTINAL PAIN [None]
  - ABDOMINAL PAIN [None]
  - ILL-DEFINED DISORDER [None]
